FAERS Safety Report 5728900-0 (Version None)
Quarter: 2008Q2

REPORT INFORMATION
  Report Type: 
  Country: None (occurrence: None)
  Receive Date: 20080506
  Receipt Date: 20080430
  Transmission Date: 20081010
  Serious: Yes (Hospitalization)
  Sender: FDA-Public Use
  Company Number: CH-BAYER-200817614GPV

PATIENT
  Age: 88 Year
  Sex: Male

DRUGS (3)
  1. ASPIRIN [Suspect]
     Indication: DRUG USE FOR UNKNOWN INDICATION
     Dosage: TOTAL DAILY DOSE: 100 MG  UNIT DOSE: 100 MG
     Route: 048
     Dates: end: 20080223
  2. IBUPROFEN TABLETS [Suspect]
     Indication: LUMBAR VERTEBRAL FRACTURE
     Dosage: TOTAL DAILY DOSE: 1200 MG  UNIT DOSE: 400 MG
     Route: 048
     Dates: start: 20080209, end: 20080223
  3. TORSEMIDE [Concomitant]
     Indication: RENAL FAILURE CHRONIC
     Dosage: TOTAL DAILY DOSE: 5 MG  UNIT DOSE: 5 MG
     Route: 048
     Dates: end: 20080223

REACTIONS (2)
  - GASTROINTESTINAL HAEMORRHAGE [None]
  - MELAENA [None]
